FAERS Safety Report 9558347 (Version 1)
Quarter: 2013Q3

REPORT INFORMATION
  Report Type: Spontaneous
  Country: US (occurrence: US)
  Receive Date: 20130926
  Receipt Date: 20130926
  Transmission Date: 20140515
  Serious: Yes (Hospitalization)
  Sender: FDA-Public Use
  Company Number: US-GE HEALTHCARE MEDICAL DIAGNOSTICS-OMPQ-PR-1309S-1152

PATIENT
  Sex: Male

DRUGS (4)
  1. OMNIPAQUE [Suspect]
     Indication: PRODUCT USED FOR UNKNOWN INDICATION
     Dosage: DOSE NOT REPORTED
     Route: 008
     Dates: start: 20130903, end: 20130903
  2. OMNIPAQUE [Suspect]
     Indication: DIAGNOSTIC PROCEDURE
  3. METHYLPREDNISOLONE ACETATE [Suspect]
  4. NACL [Suspect]

REACTIONS (1)
  - Meningitis [Recovering/Resolving]
